FAERS Safety Report 7046808-8 (Version None)
Quarter: 2010Q4

REPORT INFORMATION
  Report Type: 
  Country: None (occurrence: None)
  Receive Date: 20101015
  Receipt Date: 20101008
  Transmission Date: 20110411
  Serious: Yes (Hospitalization)
  Sender: FDA-Public Use
  Company Number: KR-SANOFI-AVENTIS-2010SA000973

PATIENT
  Age: 68 Year
  Sex: Female
  Weight: 83.3 kg

DRUGS (30)
  1. AFLIBERCEPT [Suspect]
     Route: 042
     Dates: start: 20091219, end: 20091219
  2. AFLIBERCEPT [Suspect]
     Route: 042
     Dates: start: 20090912, end: 20090912
  3. OXALIPLATIN [Suspect]
     Route: 042
     Dates: start: 20091219, end: 20091219
  4. OXALIPLATIN [Suspect]
     Route: 042
     Dates: start: 20090912, end: 20090912
  5. FLUOROURACIL [Suspect]
     Route: 042
     Dates: start: 20091219, end: 20091219
  6. FLUOROURACIL [Suspect]
     Route: 042
     Dates: start: 20090912, end: 20090912
  7. LEUCOVORIN CALCIUM [Suspect]
     Route: 042
     Dates: start: 20091219, end: 20091219
  8. LEUCOVORIN CALCIUM [Suspect]
     Route: 042
     Dates: start: 20090912, end: 20090912
  9. MEGESTROL [Concomitant]
  10. ULCERMIN [Concomitant]
  11. NIMESULIDE [Concomitant]
  12. TRIMEBUTINE MALEATE [Concomitant]
  13. TRAMADOL HCL [Concomitant]
  14. ALL OTHER THERAPEUTIC PRODUCTS [Concomitant]
  15. NIFEDIPINE [Concomitant]
  16. CARVEDILOL [Concomitant]
  17. ASPIRIN [Concomitant]
  18. DEXAMETHASONE [Concomitant]
  19. ACETAMINOPHEN [Concomitant]
  20. FUROSEMIDE [Concomitant]
  21. RAMOSETRON [Concomitant]
  22. DOMPERIDONE [Concomitant]
  23. OXYCONTIN [Concomitant]
  24. KABIVEN [Concomitant]
  25. SPIRONOLACTONE [Concomitant]
  26. FAMOTIDINE [Concomitant]
  27. GLAMIN [Concomitant]
  28. NIFEDIPINE [Concomitant]
  29. MAGNESIUM OXIDE [Concomitant]
  30. LACTULOSE [Concomitant]

REACTIONS (4)
  - ADRENAL INSUFFICIENCY [None]
  - FATIGUE [None]
  - LEUKOPENIA [None]
  - PROTEINURIA [None]
